FAERS Safety Report 5469297-3 (Version None)
Quarter: 2007Q3

REPORT INFORMATION
  Report Type: 
  Country: None (occurrence: None)
  Receive Date: 20070926
  Receipt Date: 20070926
  Transmission Date: 20080115
  Serious: Yes (Hospitalization)
  Sender: FDA-Public Use
  Company Number: None

PATIENT
  Age: 62 Year
  Sex: Female
  Weight: 74.8435 kg

DRUGS (2)
  1. GEODON [Suspect]
     Indication: MENTAL STATUS CHANGES
     Dosage: 20MG 1X IV
     Route: 042
     Dates: start: 20070715
  2. SEROQUEL [Suspect]
     Indication: MENTAL STATUS CHANGES
     Dosage: 100MG TID PO
     Route: 048
     Dates: start: 20070715, end: 20070716

REACTIONS (1)
  - HYPERTHERMIA [None]
